FAERS Safety Report 15148437 (Version 2)
Quarter: 2019Q1

REPORT INFORMATION
  Report Type: Spontaneous
  Country: US (occurrence: US)
  Receive Date: 20180716
  Receipt Date: 20190204
  Transmission Date: 20190417
  Serious: Yes (Hospitalization, Other)
  Sender: FDA-Public Use
  Company Number: US-SA-2018SA189553

PATIENT
  Age: 63 Year
  Sex: Female

DRUGS (10)
  1. AUBAGIO [Suspect]
     Active Substance: TERIFLUNOMIDE
     Indication: MULTIPLE SCLEROSIS
     Dosage: 14 MG, QD
     Route: 048
     Dates: start: 20180320
  2. HYDROCODONE [Concomitant]
     Active Substance: HYDROCODONE
     Dosage: 7.5-325 M
  3. ACID REDUCER [RANITIDINE HYDROCHLORIDE] [Concomitant]
  4. LYRICA [Concomitant]
     Active Substance: PREGABALIN
     Dosage: 300 MG
  5. NOVOLOG [Concomitant]
     Active Substance: INSULIN ASPART
  6. PREDNISONE. [Concomitant]
     Active Substance: PREDNISONE
  7. DIAZEPAM. [Concomitant]
     Active Substance: DIAZEPAM
  8. AMOXICILLIN. [Concomitant]
     Active Substance: AMOXICILLIN
  9. AUBAGIO [Suspect]
     Active Substance: TERIFLUNOMIDE
     Dosage: 14 MG, QD
     Route: 048
  10. FLUCONAZOLE. [Concomitant]
     Active Substance: FLUCONAZOLE

REACTIONS (5)
  - Pain in extremity [Unknown]
  - Hospitalisation [Unknown]
  - Depressed mood [Not Recovered/Not Resolved]
  - Fall [Not Recovered/Not Resolved]
  - Gait disturbance [Not Recovered/Not Resolved]

NARRATIVE: CASE EVENT DATE: 201806
